FAERS Safety Report 5901201-3 (Version None)
Quarter: 2008Q3

REPORT INFORMATION
  Report Type: 
  Country: None (occurrence: None)
  Receive Date: 20080929
  Receipt Date: 20080602
  Transmission Date: 20090109
  Serious: No
  Sender: FDA-Public Use
  Company Number: US-BRISTOL-MYERS SQUIBB COMPANY-14213052

PATIENT
  Age: 59 Year
  Sex: Female
  Weight: 75 kg

DRUGS (9)
  1. ORENCIA [Suspect]
     Indication: RHEUMATOID ARTHRITIS
     Dosage: STARTED ON JAN08 OR FEB08
     Dates: start: 20080101
  2. ARAVA [Concomitant]
  3. TRAMADOL HCL [Concomitant]
  4. URSO 250 [Concomitant]
  5. CALTRATE + D [Concomitant]
  6. VITAMIN E [Concomitant]
  7. ZETIA [Concomitant]
  8. CLONIDINE HCL [Concomitant]
  9. EVENING PRIMROSE OIL [Concomitant]

REACTIONS (2)
  - DRY EYE [None]
  - INCREASED UPPER AIRWAY SECRETION [None]
